FAERS Safety Report 6883037-2 (Version None)
Quarter: 2010Q3

REPORT INFORMATION
  Report Type: 
  Country: None (occurrence: None)
  Receive Date: 20100729
  Receipt Date: 20100720
  Transmission Date: 20110219
  Serious: Yes (Hospitalization, Disabling)
  Sender: FDA-Public Use
  Company Number: AU-ASTRAZENECA-2009SE01855

PATIENT
  Age: 22244 Day
  Sex: Female
  Weight: 108 kg

DRUGS (6)
  1. CRESTOR [Suspect]
     Indication: HYPERCHOLESTEROLAEMIA
     Route: 048
     Dates: start: 20081202, end: 20090114
  2. KARVEA [Concomitant]
     Indication: HYPERTENSION
     Route: 048
     Dates: start: 20090118
  3. NATRILIX [Concomitant]
     Indication: HYPERTENSION
     Route: 048
     Dates: start: 20000502, end: 20021216
  4. NATRILIX [Concomitant]
     Route: 048
     Dates: start: 20081202, end: 20090114
  5. MOBIC [Concomitant]
     Indication: BACK PAIN
     Route: 048
     Dates: start: 20081215
  6. TRAMAL [Concomitant]
     Indication: BACK PAIN
     Route: 048
     Dates: start: 20081215, end: 20081224

REACTIONS (6)
  - LUNG INFECTION [None]
  - MYALGIA [None]
  - OEDEMA PERIPHERAL [None]
  - ORGANISING PNEUMONIA [None]
  - PULMONARY FIBROSIS [None]
  - TOTAL LUNG CAPACITY DECREASED [None]
